FAERS Safety Report 7170608-1 (Version None)
Quarter: 2010Q4

REPORT INFORMATION
  Report Type: 
  Country: None (occurrence: None)
  Receive Date: 20101217
  Receipt Date: 20101213
  Transmission Date: 20110411
  Serious: Yes (Other)
  Sender: FDA-Public Use
  Company Number: A0881367A

PATIENT
  Age: 34 Year
  Sex: Female

DRUGS (3)
  1. PROMACTA [Suspect]
     Indication: IDIOPATHIC THROMBOCYTOPENIC PURPURA
     Dosage: 50MG PER DAY
     Route: 048
     Dates: start: 20100505, end: 20100622
  2. CORTICOSTEROIDS [Concomitant]
     Dates: start: 20100115
  3. IMMUNE GLOBULIN INTRAVENOUS (HUMAN) [Concomitant]
     Dates: start: 20100301

REACTIONS (4)
  - DRUG INEFFECTIVE [None]
  - EHLERS-DANLOS SYNDROME [None]
  - HAEMATOMA [None]
  - TREATMENT NONCOMPLIANCE [None]
